FAERS Safety Report 9971824 (Version 2)
Quarter: 2013Q4

REPORT INFORMATION
  Report Type: Spontaneous
  Country: US (occurrence: None)
  Receive Date: 20130923
  Receipt Date: 20131211
  Transmission Date: 20140711
  Serious: Yes (Hospitalization, Other)
  Sender: FDA-Public Use
  Company Number: 003-143

PATIENT
  Age: 43 Year
  Sex: Male
  Weight: 118.39 kg

DRUGS (1)
  1. CROFAB (BTG INTERNATIONAL, INC) [Suspect]
     Indication: SNAKE BITE
     Dosage: 4 VIALS
     Dates: start: 20130901

REACTIONS (9)
  - Local swelling [None]
  - Wheezing [None]
  - Blood pressure decreased [None]
  - Angioedema [None]
  - Alanine aminotransferase increased [None]
  - Aspartate aminotransferase increased [None]
  - Livedo reticularis [None]
  - Ecchymosis [None]
  - Skin ulcer [None]
